FAERS Safety Report 14313910 (Version 1)
Quarter: 2017Q4

REPORT INFORMATION
  Report Type: Report from Study
  Country: JP (occurrence: JP)
  Receive Date: 20171221
  Receipt Date: 20171221
  Transmission Date: 20180321
  Serious: Yes (Death, Disabling)
  Sender: FDA-Public Use
  Company Number: JP-EISAI MEDICAL RESEARCH-EC-2017-031683

PATIENT
  Age: 73 Year
  Sex: Female
  Weight: 48 kg

DRUGS (14)
  1. HALAVEN [Suspect]
     Active Substance: ERIBULIN MESYLATE
     Indication: INVASIVE LOBULAR BREAST CARCINOMA
     Route: 041
     Dates: start: 20150108, end: 20150108
  2. LOXONIN [Concomitant]
     Active Substance: LOXOPROFEN SODIUM
  3. ZITHROMAC [Concomitant]
     Active Substance: AZITHROMYCIN DIHYDRATE
  4. AZUNOL [Concomitant]
     Active Substance: SODIUM GUALENATE
  5. HALAVEN [Suspect]
     Active Substance: ERIBULIN MESYLATE
     Route: 041
     Dates: start: 20150122, end: 20150713
  6. CRAVIT [Concomitant]
     Active Substance: LEVOFLOXACIN
  7. CALONAL [Concomitant]
     Active Substance: ACETAMINOPHEN
  8. MEIACT [Concomitant]
     Active Substance: CEFDITOREN PIVOXIL
  9. HALAVEN [Suspect]
     Active Substance: ERIBULIN MESYLATE
     Route: 041
     Dates: start: 20150803, end: 20150831
  10. AZILVA [Concomitant]
     Active Substance: AZILSARTAN KAMEDOXOMIL
  11. DEXART [Concomitant]
     Active Substance: DEXAMETHASONE SODIUM PHOSPHATE
  12. ATORVASTATIN [Concomitant]
     Active Substance: ATORVASTATIN
  13. SOLACET D [Concomitant]
  14. G-LASTA [Concomitant]
     Active Substance: PEGFILGRASTIM

REACTIONS (2)
  - Malignant neoplasm progression [Fatal]
  - Peripheral sensory neuropathy [Recovered/Resolved with Sequelae]

NARRATIVE: CASE EVENT DATE: 20150122
